FAERS Safety Report 10517470 (Version 1)
Quarter: 2014Q4

REPORT INFORMATION
  Report Type: Spontaneous
  Country: US (occurrence: None)
  Receive Date: 20141003
  Receipt Date: 20141003
  Transmission Date: 20150528
  Serious: No
  Sender: FDA-Public Use
  Company Number: 1254601

PATIENT
  Age: 60 Year
  Sex: Male
  Weight: 99.79 kg

DRUGS (3)
  1. PEGASYS [Suspect]
     Active Substance: PEGINTERFERON ALFA-2A
     Indication: CHRONIC HEPATITIS C
     Route: 058
     Dates: start: 20130720
  2. RIBAVIRIN (RIBAVIRIN) [Suspect]
     Active Substance: RIBAVIRIN
     Indication: CHRONIC HEPATITIS C
     Dosage: 1400 MG PER DAY IN DIVIDED DOSES 600 BY 800 (PER DAY)
     Dates: start: 20130720
  3. TELAPREVIR (TELAPREVIR) [Suspect]
     Active Substance: TELAPREVIR
     Indication: CHRONIC HEPATITIS C
     Dates: start: 20130720

REACTIONS (7)
  - Haemoglobin decreased [None]
  - Exposure via direct contact [None]
  - White blood cell count decreased [None]
  - Underdose [None]
  - Insomnia [None]
  - Red blood cell count decreased [None]
  - Fatigue [None]
